FAERS Safety Report 8890750 (Version 1)
Quarter: 2012Q4

REPORT INFORMATION
  Report Type: 
  Country: US (occurrence: US)
  Receive Date: 20121106
  Receipt Date: 20121106
  Transmission Date: 20130627
  Serious: No
  Sender: FDA-Public Use
  Company Number: US-MUTUAL PHARMACEUTICAL COMPANY, INC.-PNTM20110010

PATIENT
  Age: 32 Year
  Sex: Female

DRUGS (2)
  1. PHENTERMINE HYDROCHLORIDE [Suspect]
     Indication: WEIGHT LOSS
     Route: 065
  2. LASIX [Concomitant]
     Indication: LYMPHEDEMA
     Route: 065

REACTIONS (1)
  - Pre-existing condition improved [None]
